FAERS Safety Report 6142074-6 (Version None)
Quarter: 2009Q1

REPORT INFORMATION
  Report Type: 
  Country: None (occurrence: None)
  Receive Date: 20090331
  Receipt Date: 20090331
  Transmission Date: 20090719
  Serious: Yes (Other)
  Sender: FDA-Public Use
  Company Number: None

PATIENT
  Age: 50 Year
  Sex: Male
  Weight: 90.7194 kg

DRUGS (2)
  1. DIVALPROEX SODIUM [Suspect]
     Indication: BIPOLAR DISORDER
     Dosage: 1500MG DAILY PO
     Route: 048
     Dates: start: 20090314, end: 20090315
  2. DIVALPROEX SODIUM EXTENDED RELEASE [Suspect]
     Indication: BIPOLAR DISORDER
     Dosage: 1000MG DAILY PO
     Route: 048
     Dates: start: 20090315, end: 20090318

REACTIONS (1)
  - AMMONIA INCREASED [None]
